FAERS Safety Report 8818118 (Version 1)
Quarter: 2012Q4

REPORT INFORMATION
  Report Type: 
  Country: US (occurrence: US)
  Receive Date: 20121001
  Receipt Date: 20121001
  Transmission Date: 20130627
  Serious: Yes (Death, Hospitalization)
  Sender: FDA-Public Use
  Company Number: US-ROCHE-CID000000002130571

PATIENT
  Age: 58 Year
  Sex: Female

DRUGS (6)
  1. HERCEPTIN [Suspect]
     Indication: BREAST CANCER
     Dosage: 1 dose given
     Route: 042
     Dates: start: 19981008
  2. 5-FU [Concomitant]
  3. TAXOTERE [Concomitant]
  4. NAVELBINE [Concomitant]
  5. MITOMYCIN-C [Concomitant]
  6. COMPAZINE [Concomitant]

REACTIONS (5)
  - Death [Fatal]
  - Dysphagia [Unknown]
  - Asthenia [Unknown]
  - Weight decreased [Unknown]
  - Fatigue [Unknown]
